FAERS Safety Report 18567704 (Version 3)
Quarter: 2020Q4

REPORT INFORMATION
  Report Type: Spontaneous
  Country: US (occurrence: US)
  Receive Date: 20201202
  Receipt Date: 20201204
  Transmission Date: 20210114
  Serious: Yes (Other)
  Sender: FDA-Public Use
  Company Number: US-SA-2020SA344191

PATIENT

DRUGS (20)
  1. PREDNISONE. [Concomitant]
     Active Substance: PREDNISONE
  2. TYLENOL [Concomitant]
     Active Substance: ACETAMINOPHEN
  3. DUPIXENT [Suspect]
     Active Substance: DUPILUMAB
     Indication: ASTHMA
     Dosage: 300 MG, QOW
     Route: 058
     Dates: start: 202006
  4. HYOSCYAMINE SULFATE. [Concomitant]
     Active Substance: HYOSCYAMINE SULFATE
  5. HYDROCHLOROTHIAZIDE. [Concomitant]
     Active Substance: HYDROCHLOROTHIAZIDE
  6. SPIRIVA RESPIMAT [Concomitant]
     Active Substance: TIOTROPIUM BROMIDE
  7. QVAR REDIHALER [Concomitant]
     Active Substance: BECLOMETHASONE DIPROPIONATE
  8. EPIPEN [Concomitant]
     Active Substance: EPINEPHRINE
  9. MOTRIN IB [Concomitant]
     Active Substance: IBUPROFEN
  10. PROAIR HFA [Concomitant]
     Active Substance: ALBUTEROL SULFATE
  11. SINGULAIR [Concomitant]
     Active Substance: MONTELUKAST SODIUM
  12. DEPAKOTE [Concomitant]
     Active Substance: DIVALPROEX SODIUM
  13. DUPIXENT [Suspect]
     Active Substance: DUPILUMAB
     Indication: DERMATITIS ATOPIC
  14. DUPIXENT [Suspect]
     Active Substance: DUPILUMAB
     Indication: ILLNESS
  15. AMITRIPTYLINE HCL [Concomitant]
     Active Substance: AMITRIPTYLINE
  16. LISINOPRIL. [Concomitant]
     Active Substance: LISINOPRIL
  17. SIMVASTATIN. [Concomitant]
     Active Substance: SIMVASTATIN
  18. BENZONATATE. [Concomitant]
     Active Substance: BENZONATATE
  19. DICYCLOMINE HCL [Concomitant]
     Active Substance: DICYCLOMINE HYDROCHLORIDE
  20. BREO ELLIPTA [Concomitant]
     Active Substance: FLUTICASONE FUROATE\VILANTEROL TRIFENATATE

REACTIONS (4)
  - Product dose omission issue [Unknown]
  - Malaise [Unknown]
  - Productive cough [Unknown]
  - Pulmonary congestion [Unknown]

NARRATIVE: CASE EVENT DATE: 2020
